FAERS Safety Report 9300048 (Version 1)
Quarter: 2013Q1

REPORT INFORMATION
  Report Type: Spontaneous
  Country: US (occurrence: None)
  Receive Date: 20121227
  Receipt Date: 20121227
  Transmission Date: 20140127
  Serious: Yes (Other)
  Sender: FDA-Public Use
  Company Number: PHEH2011US013250

PATIENT
  Age: 59 Year
  Sex: Female

DRUGS (4)
  1. CLOZARIL (CLOZAPINE) UNKNOWN [Suspect]
     Dosage: 750 UNK, UNK, ORAL
     Route: 048
     Dates: start: 19970913
  2. KLONOPIN (CLONAZEPAM) (TABLETS) [Concomitant]
  3. HALDOL (HALOPERIDOL DECANOATE) [Suspect]
  4. COGENTIN (BENZATROPINE MESILATE) [Concomitant]

REACTIONS (1)
  - Neutrophil count decreased [None]
